FAERS Safety Report 11245336 (Version 1)
Quarter: 2015Q3

REPORT INFORMATION
  Report Type: Spontaneous
  Country: US (occurrence: US)
  Receive Date: 20150707
  Receipt Date: 20150707
  Transmission Date: 20151125
  Serious: No
  Sender: FDA-Public Use
  Company Number: US-DSJP-DSU-2015-110951

PATIENT
  Sex: Female

DRUGS (1)
  1. WELCHOL [Suspect]
     Active Substance: COLESEVELAM HYDROCHLORIDE
     Indication: DIABETES MELLITUS
     Dosage: 625 MG, UNK
     Route: 048
     Dates: start: 201503

REACTIONS (2)
  - Gastritis [Unknown]
  - Gastrooesophageal reflux disease [Unknown]
